FAERS Safety Report 18174012 (Version 2)
Quarter: 2025Q4

REPORT INFORMATION
  Report Type: Spontaneous
  Country: EU (occurrence: EU)
  Receive Date: 20200820
  Receipt Date: 20251015
  Transmission Date: 20260118
  Serious: Yes (Hospitalization)
  Sender: AUROBINDO
  Company Number: EU-AFSSAPS-LL20201106

PATIENT
  Age: 75 Year
  Sex: Female

DRUGS (3)
  1. METFORMIN [Suspect]
     Active Substance: METFORMIN HYDROCHLORIDE
     Indication: Diabetes mellitus
     Dosage: 2 GRAM
     Route: 048
     Dates: start: 20200707, end: 20200707
  2. DAPTOMYCIN [Suspect]
     Active Substance: DAPTOMYCIN
     Indication: Infection
     Dosage: 850 MILLIGRAM
     Route: 042
     Dates: start: 20200707, end: 20200709
  3. ORNIDAZOLE [Suspect]
     Active Substance: ORNIDAZOLE
     Indication: Infection
     Dosage: 1500 MILLIGRAM
     Route: 042
     Dates: start: 20200707, end: 20200709

REACTIONS (1)
  - Metabolic acidosis [Recovered/Resolved]

NARRATIVE: CASE EVENT DATE: 20200709
